FAERS Safety Report 9859714 (Version 1)
Quarter: 2014Q1

REPORT INFORMATION
  Report Type: Spontaneous
  Country: US (occurrence: US)
  Receive Date: 20140131
  Receipt Date: 20140131
  Transmission Date: 20141002
  Serious: No
  Sender: FDA-Public Use
  Company Number: US-B.I. PHARMACEUTICALS,INC./RIDGEFIELD-2014-BI-02796BP

PATIENT
  Age: 83 Year
  Sex: Male
  Weight: 73 kg

DRUGS (11)
  1. ATENOLOL [Concomitant]
     Indication: HYPERTENSION
     Route: 048
  2. AMILODIPINE [Concomitant]
     Indication: HYPERTENSION
     Route: 048
  3. PROTONIX [Concomitant]
     Indication: HIATUS HERNIA
     Route: 048
  4. PROTONIX [Concomitant]
     Indication: OESOPHAGEAL FOOD IMPACTION
  5. FLOMAX [Concomitant]
     Indication: DYSURIA
  6. ZOCAR [Concomitant]
     Indication: BLOOD CHOLESTEROL INCREASED
     Route: 048
     Dates: start: 1996
  7. LOSARTIN [Concomitant]
     Indication: HYPERTENSION
     Route: 048
  8. BABY ASPIRIN [Concomitant]
     Indication: PRODUCT USED FOR UNKNOWN INDICATION
     Route: 048
  9. LEVOTHROXINE [Concomitant]
     Indication: HYPOTHYROIDISM
     Route: 048
  10. COMBIVENT [Suspect]
     Indication: PNEUMONIA
     Dosage: STRENGTH: 20 MCG / 100 MCG
     Route: 055
  11. PLAVIX [Concomitant]
     Indication: ANTIPLATELET THERAPY
     Route: 048

REACTIONS (3)
  - Haemoptysis [Recovered/Resolved]
  - Epistaxis [Recovered/Resolved]
  - Off label use [Unknown]
